FAERS Safety Report 7595041-X (Version None)
Quarter: 2011Q3

REPORT INFORMATION
  Report Type: 
  Country: None (occurrence: None)
  Receive Date: 20110707
  Receipt Date: 20110630
  Transmission Date: 20111222
  Serious: Yes (Hospitalization)
  Sender: FDA-Public Use
  Company Number: NL-ABBOTT-11P-114-0835765-00

PATIENT
  Sex: Female
  Weight: 68 kg

DRUGS (7)
  1. HUMIRA [Suspect]
     Route: 058
     Dates: start: 20110101, end: 20110401
  2. DESOGESTREL AND ETHINYL ESTRADIOL [Concomitant]
     Indication: POSTMENOPAUSE
     Route: 048
  3. FOLIC ACID [Concomitant]
     Indication: DRUG THERAPY
     Route: 048
     Dates: start: 20050101
  4. PREDNISOLONE [Concomitant]
     Indication: INFLAMMATION
     Route: 048
     Dates: start: 20110501
  5. HUMIRA [Suspect]
     Indication: RHEUMATOID ARTHRITIS
     Route: 058
     Dates: start: 20080701, end: 20101201
  6. ACENOCOUMAROL [Concomitant]
     Indication: PULMONARY EMBOLISM
     Route: 048
     Dates: start: 20101201
  7. CODEINE W/PARACETAMOL [Concomitant]
     Indication: ARTHRALGIA
     Dosage: 2-4 TABLETS PER MONTH
     Route: 048
     Dates: start: 20050101

REACTIONS (2)
  - PNEUMONIA [None]
  - PULMONARY EMBOLISM [None]
